FAERS Safety Report 4488397-8 (Version None)
Quarter: 2004Q4

REPORT INFORMATION
  Report Type: 
  Country: None (occurrence: None)
  Receive Date: 20041026
  Receipt Date: 20041014
  Transmission Date: 20050328
  Serious: Yes (Life-Threatening, Hospitalization, Disabling, Other)
  Sender: FDA-Public Use
  Company Number: 2004035342

PATIENT
  Sex: 0

DRUGS (1)
  1. LIPITOR [Suspect]
     Indication: BLOOD CHOLESTEROL
     Dosage: ORAL
     Route: 048
     Dates: start: 20020901, end: 20030601

REACTIONS (17)
  - ANXIETY [None]
  - ASTHENIA [None]
  - CIRCULATORY COLLAPSE [None]
  - DEPRESSION [None]
  - DIFFICULTY IN WALKING [None]
  - HEADACHE [None]
  - INJURY [None]
  - INSOMNIA [None]
  - MOVEMENT DISORDER [None]
  - MYALGIA [None]
  - MYOPATHY [None]
  - NIGHTMARE [None]
  - PAIN [None]
  - PAIN IN EXTREMITY [None]
  - PARALYSIS [None]
  - RENAL FAILURE [None]
  - SCREAMING [None]
